FAERS Safety Report 24285019 (Version 1)
Quarter: 2024Q3

REPORT INFORMATION
  Report Type: Spontaneous
  Country: SK (occurrence: SK)
  Receive Date: 20240905
  Receipt Date: 20240905
  Transmission Date: 20241017
  Serious: Yes (Hospitalization, Other)
  Sender: JOHNSON AND JOHNSON
  Company Number: SK-JNJFOC-20240880976

PATIENT
  Age: 78 Year
  Sex: Female

DRUGS (8)
  1. DARZALEX [Suspect]
     Active Substance: DARATUMUMAB
     Indication: Plasma cell myeloma
     Dosage: CYCLE 1 (6 WEEKS)
     Route: 058
  2. DARZALEX [Suspect]
     Active Substance: DARATUMUMAB
     Dosage: CYCLE 2-9 (6 WEEKS)
     Route: 058
  3. VELCADE [Suspect]
     Active Substance: BORTEZOMIB
     Indication: Plasma cell myeloma
     Dosage: 1.3 MG/M (1, 2, 4, 5)
     Route: 058
  4. VELCADE [Suspect]
     Active Substance: BORTEZOMIB
     Dosage: 1.3 MG/M (2, 4, 5)
     Route: 058
  5. MELPHALAN [Suspect]
     Active Substance: MELPHALAN
     Indication: Plasma cell myeloma
     Dosage: 9 MG/M 1XDENNE (1-4)
     Route: 048
  6. MELPHALAN [Suspect]
     Active Substance: MELPHALAN
     Dosage: 9 MG/M 1XDENNE (1-4)
     Route: 048
  7. PREDNISONE [Suspect]
     Active Substance: PREDNISONE
     Indication: Plasma cell myeloma
     Dosage: 60MG/M PO 1XDENNE (1-4)
     Route: 048
  8. PREDNISONE [Suspect]
     Active Substance: PREDNISONE
     Dosage: 60MG/M PO 1XDENNE (1-4)
     Route: 048

REACTIONS (4)
  - Pulmonary oedema [Unknown]
  - Infusion related reaction [Unknown]
  - Atrial flutter [Unknown]
  - Renal failure [Unknown]
